FAERS Safety Report 8255697-5 (Version None)
Quarter: 2012Q2

REPORT INFORMATION
  Report Type: 
  Country: None (occurrence: None)
  Receive Date: 20120403
  Receipt Date: 20120403
  Transmission Date: 20120825
  Serious: Yes (Disabling)
  Sender: FDA-Public Use
  Company Number: None

PATIENT
  Age: 42 Year
  Sex: Female
  Weight: 77.11 kg

DRUGS (1)
  1. COPAXONE [Suspect]
     Indication: MULTIPLE SCLEROSIS
     Dosage: 20.0 MG
     Route: 058
     Dates: start: 20120327, end: 20120404

REACTIONS (6)
  - ABDOMINAL DISTENSION [None]
  - NO THERAPEUTIC RESPONSE [None]
  - CONSTIPATION [None]
  - ABASIA [None]
  - ABDOMINAL TENDERNESS [None]
  - NAUSEA [None]
